FAERS Safety Report 8116027-2 (Version None)
Quarter: 2011Q4

REPORT INFORMATION
  Report Type: 
  Country: None (occurrence: None)
  Receive Date: 20111227
  Receipt Date: 20110919
  Transmission Date: 20120403
  Serious: Yes (Other)
  Sender: FDA-Public Use
  Company Number: PHHY2011US66351

PATIENT
  Age: 41 Year
  Sex: Female

DRUGS (7)
  1. BUSPIRONE HCL [Concomitant]
  2. GILENYA [Suspect]
     Indication: MULTIPLE SCLEROSIS
     Dosage: 0.5 MG, QD
  3. XANAX [Concomitant]
  4. BACLOFEN [Concomitant]
  5. OXYBUTYNIN [Concomitant]
  6. ACETAMINOPHEN [Concomitant]
  7. VITAMIN D [Concomitant]

REACTIONS (1)
  - BLOOD PRESSURE INCREASED [None]
